FAERS Safety Report 7677565-X (Version None)
Quarter: 2011Q3

REPORT INFORMATION
  Report Type: 
  Country: None (occurrence: None)
  Receive Date: 20110811
  Receipt Date: 20110811
  Transmission Date: 20111222
  Serious: Yes (Other)
  Sender: FDA-Public Use
  Company Number: None

PATIENT
  Age: 56 Year
  Sex: Female

DRUGS (1)
  1. ZOLPIDEM TARTRATE [Suspect]
     Indication: INSOMNIA
     Dosage: 6.25MG
     Route: 048
     Dates: start: 20110615, end: 20110615

REACTIONS (2)
  - FOREIGN BODY [None]
  - PRODUCT TASTE ABNORMAL [None]
